FAERS Safety Report 8009808-7 (Version None)
Quarter: 2011Q4

REPORT INFORMATION
  Report Type: 
  Country: None (occurrence: None)
  Receive Date: 20111228
  Receipt Date: 20111219
  Transmission Date: 20120403
  Serious: Yes (Other)
  Sender: FDA-Public Use
  Company Number: BR-ACCORD-011679

PATIENT
  Age: 54 Year
  Sex: Female
  Weight: 73 kg

DRUGS (7)
  1. IRINOTECAN HCL [Suspect]
     Dosage: 99.9MG
     Route: 042
     Dates: start: 20111121, end: 20111121
  2. CISPLATIN [Suspect]
     Dosage: 49.95 MG
     Route: 042
     Dates: start: 20111121, end: 20111121
  3. ONDANSETRON [Concomitant]
     Indication: PREMEDICATION
     Route: 042
     Dates: start: 20111121, end: 20111121
  4. CISPLATIN [Concomitant]
     Indication: PREMEDICATION
     Dates: start: 20111121, end: 20111121
  5. PAMIDRONATE DISODIUM [Concomitant]
     Indication: PREMEDICATION
     Route: 042
     Dates: start: 20111121, end: 20111121
  6. ATROPINE [Concomitant]
     Indication: PREMEDICATION
     Route: 042
     Dates: start: 20111121, end: 20111121
  7. DEXAMETHASONE [Concomitant]
     Indication: PREMEDICATION
     Route: 042
     Dates: start: 20111121, end: 20111121

REACTIONS (4)
  - PETECHIAE [None]
  - FLUSHING [None]
  - HYPERHIDROSIS [None]
  - DYSPEPSIA [None]
